FAERS Safety Report 9047355 (Version 1)
Quarter: 2013Q1

REPORT INFORMATION
  Report Type: Report from Study
  Country: US (occurrence: US)
  Receive Date: 20130131
  Receipt Date: 20130131
  Transmission Date: 20140127
  Serious: No
  Sender: FDA-Public Use
  Company Number: US-ABBOTT-12P-163-0980842-00

PATIENT
  Age: 54 Year
  Sex: Female

DRUGS (8)
  1. HUMIRA [Suspect]
     Indication: CROHN^S DISEASE
     Dates: start: 20120619
  2. AZASAN [Concomitant]
     Indication: CROHN^S DISEASE
     Route: 048
  3. MIRALAX [Concomitant]
     Indication: CONSTIPATION PROPHYLAXIS
     Dosage: 1 CAPFUL IN AM
  4. SEROQUEL [Concomitant]
     Indication: DEPRESSION
     Dosage: 1 IN AM AND 3 AT BED TIME
     Route: 048
  5. EFFEXOR XR [Concomitant]
     Indication: DEPRESSION
  6. PREDNISONE [Concomitant]
     Indication: CROHN^S DISEASE
     Dosage: 10MG, 1/2 TABLET DAILY
     Route: 048
  7. CENTRUM SILVER MULTIVITAMIN [Concomitant]
     Indication: ROUTINE HEALTH MAINTENANCE
  8. BAYER LOW DOSE ASA [Concomitant]
     Indication: ROUTINE HEALTH MAINTENANCE
     Route: 048

REACTIONS (1)
  - Nausea [Recovered/Resolved]
